FAERS Safety Report 20632178 (Version 2)
Quarter: 2022Q2

REPORT INFORMATION
  Report Type: Spontaneous
  Country: ZA (occurrence: ZA)
  Receive Date: 20220324
  Receipt Date: 20220405
  Transmission Date: 20220720
  Serious: Yes (Other)
  Sender: FDA-Public Use
  Company Number: ZA-NOVARTISPH-NVSC2022ZA063183

PATIENT
  Sex: Female

DRUGS (2)
  1. DABRAFENIB [Suspect]
     Active Substance: DABRAFENIB
     Indication: Metastatic malignant melanoma
     Dosage: UNK (FORMULATION: CAPSULE)
     Route: 048
     Dates: start: 202203
  2. TRAMETINIB [Suspect]
     Active Substance: TRAMETINIB
     Indication: Metastatic malignant melanoma
     Dosage: UNK (FORMULATION: TABLET)
     Route: 048
     Dates: start: 202203

REACTIONS (3)
  - Malignant melanoma of eyelid [Unknown]
  - Uveitis [Unknown]
  - Eye irritation [Unknown]
